FAERS Safety Report 6147323-6 (Version None)
Quarter: 2009Q2

REPORT INFORMATION
  Report Type: 
  Country: None (occurrence: None)
  Receive Date: 20090408
  Receipt Date: 20090406
  Transmission Date: 20091009
  Serious: Yes (Death, Other)
  Sender: FDA-Public Use
  Company Number: US-ASTRAZENECA-2008UW24683

PATIENT
  Age: 42 Year
  Sex: Male

DRUGS (5)
  1. SEROQUEL [Suspect]
     Indication: BIPOLAR DISORDER
     Route: 048
     Dates: start: 20081001
  2. ZYPREXA [Concomitant]
     Indication: BIPOLAR DISORDER
     Route: 048
     Dates: end: 20081001
  3. ZYPREXA [Concomitant]
     Route: 048
     Dates: end: 20081001
  4. PAXIL CR [Concomitant]
     Indication: DEPRESSION
     Route: 048
     Dates: end: 20081001
  5. PAXIL CR [Concomitant]
     Indication: POST-TRAUMATIC STRESS DISORDER
     Route: 048
     Dates: end: 20081001

REACTIONS (6)
  - CARDIAC ARREST [None]
  - CONVULSION [None]
  - DRUG TOXICITY [None]
  - MYOCARDIAL INFARCTION [None]
  - NEUROLEPTIC MALIGNANT SYNDROME [None]
  - WEIGHT INCREASED [None]
